FAERS Safety Report 5130252-4 (Version None)
Quarter: 2006Q4

REPORT INFORMATION
  Report Type: 
  Country: None (occurrence: None)
  Receive Date: 20061019
  Receipt Date: 20061005
  Transmission Date: 20070319
  Serious: Yes (Other)
  Sender: FDA-Public Use
  Company Number: PHNR2006AU01376

PATIENT
  Sex: Male

DRUGS (3)
  1. RITALIN LA [Suspect]
     Dosage: 30 MG
     Route: 048
  2. RITALIN LA [Suspect]
     Dosage: 20 MG
     Route: 048
  3. RITALIN LA [Suspect]
     Dosage: 10 MG
     Route: 048

REACTIONS (2)
  - AGITATION [None]
  - PHARMACEUTICAL PRODUCT COMPLAINT [None]
